FAERS Safety Report 10637783 (Version 2)
Quarter: 2014Q4

REPORT INFORMATION
  Report Type: Spontaneous
  Country: IT (occurrence: IT)
  Receive Date: 20141208
  Receipt Date: 20141218
  Transmission Date: 20150529
  Serious: Yes (Other)
  Sender: FDA-Public Use
  Company Number: IT-ASTRAZENECA-2014SE93229

PATIENT
  Age: 34470 Day
  Sex: Female
  Weight: 78 kg

DRUGS (3)
  1. ANTRA [Suspect]
     Active Substance: OMEPRAZOLE
     Indication: GASTRIC DISORDER
     Route: 048
     Dates: start: 20140629, end: 20140701
  2. FERLIXIT [Suspect]
     Active Substance: SODIUM FERRIC GLUCONATE COMPLEX
     Indication: ANAEMIA
     Dosage: 1 DF, DAILY, 62.5MG/5 ML SOLUTION FOR ORAL AND FOR INTRAVENOUS ADMINISTRATION
     Route: 042
     Dates: start: 20140628, end: 20140701
  3. EPREX [Suspect]
     Active Substance: ERYTHROPOIETIN
     Indication: ANAEMIA
     Dosage: 6000 IU/0.6ML PREFILLED SYRINGE
     Route: 058
     Dates: start: 20140628, end: 20140630

REACTIONS (2)
  - Pruritus [Recovered/Resolved]
  - Skin exfoliation [Recovered/Resolved]

NARRATIVE: CASE EVENT DATE: 20140701
